FAERS Safety Report 20407143 (Version 1)
Quarter: 2022Q1

REPORT INFORMATION
  Report Type: Spontaneous
  Country: US (occurrence: None)
  Receive Date: 20220131
  Receipt Date: 20220131
  Transmission Date: 20220423
  Serious: No
  Sender: FDA-Public Use
  Company Number: None

PATIENT
  Age: 42 Year
  Sex: Female
  Weight: 76.5 kg

DRUGS (1)
  1. ISOTRETINOIN [Suspect]
     Active Substance: ISOTRETINOIN
     Indication: Pityriasis rubra pilaris
     Route: 048
     Dates: start: 20211101, end: 20211201

REACTIONS (5)
  - Product availability issue [None]
  - Pain [None]
  - Anxiety [None]
  - Therapy interrupted [None]
  - Device computer issue [None]

NARRATIVE: CASE EVENT DATE: 20211201
